FAERS Safety Report 10432659 (Version 2)
Quarter: 2014Q4

REPORT INFORMATION
  Report Type: Spontaneous
  Country: JP (occurrence: None)
  Receive Date: 20140903
  Receipt Date: 20141215
  Transmission Date: 20150528
  Serious: No
  Sender: FDA-Public Use
  Company Number: JP-016878

PATIENT
  Age: 71 Year
  Sex: Male

DRUGS (1)
  1. DEGARELIX (GONAX) 80MG [Suspect]
     Active Substance: DEGARELIX
     Indication: PROSTATE CANCER
     Route: 058

REACTIONS (3)
  - Intentional product use issue [None]
  - Injection site necrosis [None]
  - Injection site induration [None]

NARRATIVE: CASE EVENT DATE: 20140812
